FAERS Safety Report 21006469 (Version 4)
Quarter: 2023Q2

REPORT INFORMATION
  Report Type: Spontaneous
  Country: FR (occurrence: FR)
  Receive Date: 20220624
  Receipt Date: 20230630
  Transmission Date: 20230722
  Serious: Yes (Hospitalization, Other)
  Sender: FDA-Public Use
  Company Number: FR-GW PHARMA-2022-FR-021075

PATIENT

DRUGS (6)
  1. CANNABIDIOL [Suspect]
     Active Substance: CANNABIDIOL
     Indication: Severe myoclonic epilepsy of infancy
     Dosage: 10 OR 12 MG/KG/DAYS
     Dates: start: 20220506
  2. CANNABIDIOL [Suspect]
     Active Substance: CANNABIDIOL
     Dosage: 7.5 MG/KG/DAY
     Dates: start: 20220506
  3. VALPROATE SODIUM [Concomitant]
     Active Substance: VALPROATE SODIUM
     Indication: Severe myoclonic epilepsy of infancy
     Dosage: 500 MILLIGRAM
     Dates: start: 2019
  4. DIACOMIT [Concomitant]
     Active Substance: STIRIPENTOL
     Indication: Severe myoclonic epilepsy of infancy
     Dosage: 500 MILLIGRAM
     Dates: start: 20220117
  5. CLOBAZAM [Concomitant]
     Active Substance: CLOBAZAM
     Indication: Severe myoclonic epilepsy of infancy
     Dosage: 6 MILLIGRAM
     Dates: start: 2020
  6. MELATONIN [Concomitant]
     Active Substance: MELATONIN
     Indication: Sleep disorder
     Dosage: 2 MILLIGRAM
     Dates: start: 2021

REACTIONS (5)
  - Skin infection [Not Recovered/Not Resolved]
  - Subcutaneous abscess [Not Recovered/Not Resolved]
  - Dermo-hypodermitis [Recovered/Resolved]
  - Lymphadenitis [Recovered/Resolved]
  - Varicella [Unknown]

NARRATIVE: CASE EVENT DATE: 20220529
